FAERS Safety Report 25851606 (Version 1)
Quarter: 2025Q3

REPORT INFORMATION
  Report Type: Spontaneous
  Country: IN (occurrence: IN)
  Receive Date: 20250926
  Receipt Date: 20250926
  Transmission Date: 20251020
  Serious: Yes (Other)
  Sender: RANBAXY
  Company Number: IN-SUN PHARMACEUTICAL INDUSTRIES LTD-2025R1-528708

PATIENT
  Age: 51 Year
  Sex: Female

DRUGS (1)
  1. OCTREOTIDE ACETATE [Suspect]
     Active Substance: OCTREOTIDE ACETATE
     Indication: Product used for unknown indication
     Route: 065
     Dates: start: 20250825, end: 20250825

REACTIONS (4)
  - Injection site abscess [Unknown]
  - Injection site swelling [Unknown]
  - Injection site induration [Unknown]
  - Injection site infection [Unknown]
